FAERS Safety Report 16531794 (Version 1)
Quarter: 2019Q3

REPORT INFORMATION
  Report Type: Spontaneous
  Country: DE (occurrence: DE)
  Receive Date: 20190705
  Receipt Date: 20190705
  Transmission Date: 20191004
  Serious: Yes (Hospitalization)
  Sender: FDA-Public Use
  Company Number: DE-TEVA-2019-DE-1073345

PATIENT
  Age: 74 Year
  Sex: Male

DRUGS (19)
  1. ATORVASTATIN [Concomitant]
     Active Substance: ATORVASTATIN
     Dosage: 20 MG, 0-0-1-0
  2. HYDROMORPHON RET. [Suspect]
     Active Substance: HYDROMORPHONE
     Dosage: 4 MG, 2-0-1-0
  3. PANTOPRAZOL [Concomitant]
     Active Substance: PANTOPRAZOLE SODIUM
     Dosage: 40 MG, 1-0-0-1
  4. METOHEXAL [Concomitant]
     Active Substance: METOPROLOL
     Dosage: 95 MG, 1-0-1-0
  5. XIPAMIDE [Concomitant]
     Active Substance: XIPAMIDE
     Dosage: 10 MG, 0.5-0-0.5-0
  6. METFORMIN [Concomitant]
     Active Substance: METFORMIN HYDROCHLORIDE
     Dosage: 1000 MG, 1-0-1-0
  7. MIFLONIDE [Concomitant]
     Active Substance: BUDESONIDE
     Dosage: 400 ?G, 1-0-1-0
  8. PREDNISOLONE. [Suspect]
     Active Substance: PREDNISOLONE
     Dosage: 5 MG, 1-0-0-0
  9. LEFLUNOMID [Suspect]
     Active Substance: LEFLUNOMIDE
     Dosage: 20 MG, 1-0-0-0
  10. ELIQUIS [Concomitant]
     Active Substance: APIXABAN
     Dosage: 5 MG, 1-0-1-0
  11. GABAPENTIN. [Concomitant]
     Active Substance: GABAPENTIN
     Dosage: 300 MG, 1-0-2-0
  12. FUROSEMID [Concomitant]
     Active Substance: FUROSEMIDE
     Dosage: 40 MG, 0.5-0-0-0
  13. DIGIMERCK [Concomitant]
     Active Substance: DIGITOXIN
     Dosage: 0.07 MG, 1-0-0-0
  14. FORMOTEROL [Concomitant]
     Active Substance: FORMOTEROL
     Dosage: 1-0-1-0
  15. TAMSULOSIN [Concomitant]
     Active Substance: TAMSULOSIN
  16. SPIRIVA [Concomitant]
     Active Substance: TIOTROPIUM BROMIDE MONOHYDRATE
     Dosage: 1-0-0-0
  17. NOVORAPID [Concomitant]
     Active Substance: INSULIN ASPART
     Dosage: BY SCHEME
  18. LEVEMIR [Concomitant]
     Active Substance: INSULIN DETEMIR
     Dosage: BY SCHEME
  19. RANEXA [Concomitant]
     Active Substance: RANOLAZINE
     Dosage: 1-0-1-0

REACTIONS (3)
  - Dyspnoea [Unknown]
  - Hypercapnia [Unknown]
  - Pneumonia [Unknown]
